FAERS Safety Report 4775071-3 (Version None)
Quarter: 2005Q3

REPORT INFORMATION
  Report Type: 
  Country: None (occurrence: None)
  Receive Date: 20050920
  Receipt Date: 20050908
  Transmission Date: 20060218
  Serious: Yes (Hospitalization)
  Sender: FDA-Public Use
  Company Number: HQWYE767508AUG05

PATIENT
  Age: 83 Year
  Sex: Female

DRUGS (11)
  1. ETODOLAC [Suspect]
     Indication: OSTEOARTHRITIS
     Dosage: 400 MG 1X PER 1 DAY, ORAL
     Route: 048
     Dates: start: 20050621, end: 20050803
  2. ETODOLAC [Suspect]
     Indication: PROCEDURAL PAIN
     Dosage: 400 MG 1X PER 1 DAY, ORAL
     Route: 048
     Dates: start: 20050621, end: 20050803
  3. SOLON (SOFALCONE) [Concomitant]
  4. BLOPRESS (CANDESARTAN CILEXETIL) [Concomitant]
  5. LASIX [Concomitant]
  6. ASPARA K (ASPARTATE POTASSIUM) [Concomitant]
  7. PRAVASTATIN [Concomitant]
  8. ALLOPURINOL [Concomitant]
  9. TICLOPIDINE HCL [Concomitant]
  10. RABEPRAZOLE SODIUM [Concomitant]
  11. DEPAS (ETIZOLAM) [Concomitant]

REACTIONS (5)
  - HAEMATOCRIT DECREASED [None]
  - HAEMOGLOBIN DECREASED [None]
  - PLATELET COUNT DECREASED [None]
  - RED BLOOD CELL COUNT DECREASED [None]
  - WHITE BLOOD CELL COUNT DECREASED [None]
